FAERS Safety Report 9261828 (Version 1)
Quarter: 2013Q2

REPORT INFORMATION
  Report Type: Spontaneous
  Country: FR (occurrence: FR)
  Receive Date: 20130429
  Receipt Date: 20130429
  Transmission Date: 20140414
  Serious: Yes (Death, Other)
  Sender: FDA-Public Use
  Company Number: FR-ASTRAZENECA-2013SE28722

PATIENT
  Age: 30819 Day
  Sex: Female

DRUGS (5)
  1. XEROQUEL [Suspect]
     Indication: AGITATION
     Route: 048
     Dates: start: 20130330
  2. ISOPTINE [Concomitant]
     Route: 048
  3. NORSET [Concomitant]
     Route: 048
  4. EBIXA [Concomitant]
     Route: 048
  5. METHOTREXATE [Concomitant]
     Indication: PEMPHIGOID
     Route: 048

REACTIONS (3)
  - Somnolence [Fatal]
  - Unresponsive to stimuli [Unknown]
  - Intentional drug misuse [Unknown]
